FAERS Safety Report 7720164-1 (Version None)
Quarter: 2011Q3

REPORT INFORMATION
  Report Type: 
  Country: None (occurrence: None)
  Receive Date: 20110824
  Receipt Date: 20110815
  Transmission Date: 20111222
  Serious: Yes (Hospitalization)
  Sender: FDA-Public Use
  Company Number: 11-487

PATIENT
  Age: 68 Year
  Sex: Female

DRUGS (8)
  1. MIRTAZAPINE [Concomitant]
  2. RAMIPRIL [Concomitant]
  3. ASPIRIN [Suspect]
     Indication: CARDIOVASCULAR DISORDER
     Dosage: 75MG-QD ORAL
     Route: 048
     Dates: end: 20101003
  4. RIVAROXABAN [Suspect]
     Indication: THROMBOSIS PROPHYLAXIS
     Dosage: 70MG - BID ORAL
     Route: 048
     Dates: start: 20101002, end: 20101003
  5. LEVOTHRYOXINE SODIUM [Concomitant]
  6. ACETAMINOPHEN AND CODEINE PHOSPHATE [Concomitant]
  7. IBUPROFEN [Suspect]
     Indication: POSTOPERATIVE ANALGESIA
     Dosage: 200MG-3X DAY ORAL
     Route: 048
     Dates: start: 20101003, end: 20101003
  8. ATENOLOL [Concomitant]

REACTIONS (3)
  - HYPOTENSION [None]
  - HIP ARTHROPLASTY [None]
  - OESOPHAGITIS HAEMORRHAGIC [None]
